FAERS Safety Report 7794430-8 (Version None)
Quarter: 2011Q4

REPORT INFORMATION
  Report Type: 
  Country: None (occurrence: None)
  Receive Date: 20111004
  Receipt Date: 20111004
  Transmission Date: 20120403
  Serious: Yes (Life-Threatening, Hospitalization)
  Sender: FDA-Public Use
  Company Number: None

PATIENT
  Age: 23 Year
  Sex: Female
  Weight: 90.718 kg

DRUGS (1)
  1. MIFEPREX [Suspect]

REACTIONS (2)
  - SYNCOPE [None]
  - HAEMORRHAGE [None]
